FAERS Safety Report 7117476-1 (Version None)
Quarter: 2010Q4

REPORT INFORMATION
  Report Type: 
  Country: None (occurrence: None)
  Receive Date: 20101122
  Receipt Date: 20101112
  Transmission Date: 20110411
  Serious: Yes (Hospitalization, Other)
  Sender: FDA-Public Use
  Company Number: BR-ABBOTT-10P-020-0685141-00

PATIENT
  Age: 10 Year
  Sex: Male
  Weight: 40 kg

DRUGS (2)
  1. HUMIRA [Suspect]
     Indication: CROHN'S DISEASE
     Route: 058
     Dates: end: 20101103
  2. MESALAZINE [Concomitant]
     Indication: CROHN'S DISEASE
     Dosage: 2.5MG A DAY - 80MG/KG A DAY
     Route: 048

REACTIONS (9)
  - DIPLOPIA [None]
  - HAEMATOCHEZIA [None]
  - HEADACHE [None]
  - HYPERACUSIS [None]
  - MUSCULOSKELETAL STIFFNESS [None]
  - PAPILLOEDEMA [None]
  - SUPERIOR SAGITTAL SINUS THROMBOSIS [None]
  - THROMBOSIS [None]
  - TRANSVERSE SINUS THROMBOSIS [None]
